FAERS Safety Report 21367764 (Version 1)
Quarter: 2022Q3

REPORT INFORMATION
  Report Type: Spontaneous
  Country: US (occurrence: US)
  Receive Date: 20220923
  Receipt Date: 20220923
  Transmission Date: 20221027
  Serious: No
  Sender: FDA-Public Use
  Company Number: US-PURDUE-USA-2021-0290443

PATIENT
  Age: 64 Year
  Sex: Female

DRUGS (1)
  1. ACETAMINOPHEN\OXYCODONE HYDROCHLORIDE [Suspect]
     Active Substance: ACETAMINOPHEN\OXYCODONE HYDROCHLORIDE
     Indication: Pain
     Dosage: 1 DF, 5/DAY (10-325 MG)
     Route: 048

REACTIONS (9)
  - Retching [Unknown]
  - Illness [Unknown]
  - Product administration error [Unknown]
  - Product taste abnormal [Unknown]
  - Product use complaint [Unknown]
  - Diarrhoea [Unknown]
  - Headache [Unknown]
  - Abdominal pain upper [Unknown]
  - Vomiting [Unknown]
